FAERS Safety Report 5190612-2 (Version None)
Quarter: 2006Q4

REPORT INFORMATION
  Report Type: 
  Country: None (occurrence: None)
  Receive Date: 20061222
  Receipt Date: 20060922
  Transmission Date: 20070319
  Serious: No
  Sender: FDA-Public Use
  Company Number: US-BRISTOL-MYERS SQUIBB COMPANY-13518378

PATIENT
  Age: 48 Year
  Sex: Female
  Weight: 83 kg

DRUGS (3)
  1. ORENCIA [Suspect]
     Indication: RHEUMATOID ARTHRITIS
     Dosage: DOSAGE FORM = VIAL
     Route: 042
     Dates: start: 20060921
  2. THYROID USP [Concomitant]
  3. ADVIL [Concomitant]

REACTIONS (2)
  - HEADACHE [None]
  - NASAL CONGESTION [None]
